FAERS Safety Report 8558325 (Version 2)
Quarter: 2013Q2

REPORT INFORMATION
  Report Type: Spontaneous
  Country: US (occurrence: US)
  Receive Date: 20120511
  Receipt Date: 20130510
  Transmission Date: 20140414
  Serious: Yes (Other)
  Sender: FDA-Public Use
  Company Number: US-GLAXOSMITHKLINE-A0959858A

PATIENT
  Age: 57 Year
  Sex: Female

DRUGS (3)
  1. TYKERB [Suspect]
     Indication: BREAST CANCER
     Dosage: 1250MG PER DAY
     Route: 065
  2. IMODIUM [Suspect]
     Indication: DIARRHOEA
     Route: 065
  3. DOXYCYCLINE [Suspect]
     Indication: INFECTION
     Route: 065

REACTIONS (20)
  - Diarrhoea [Recovered/Resolved]
  - Constipation [Not Recovered/Not Resolved]
  - Abdominal pain upper [Unknown]
  - Abdominal pain [Unknown]
  - Dermatitis acneiform [Unknown]
  - Nasal dryness [Unknown]
  - Epistaxis [Unknown]
  - Hypersensitivity [Unknown]
  - Nail disorder [Not Recovered/Not Resolved]
  - Nail infection [Recovering/Resolving]
  - Dyspepsia [Not Recovered/Not Resolved]
  - Cystitis [Unknown]
  - Dysuria [Unknown]
  - Pollakiuria [Unknown]
  - Haemorrhage [Recovering/Resolving]
  - Pain in extremity [Recovering/Resolving]
  - Onychalgia [Recovering/Resolving]
  - Localised infection [Recovering/Resolving]
  - Epistaxis [Recovering/Resolving]
  - Hepatic enzyme increased [Unknown]
